FAERS Safety Report 13961394 (Version 1)
Quarter: 2017Q3

REPORT INFORMATION
  Report Type: Spontaneous
  Country: GB (occurrence: GB)
  Receive Date: 20170912
  Receipt Date: 20170912
  Transmission Date: 20171128
  Serious: Yes (Hospitalization)
  Sender: FDA-Public Use
  Company Number: GB-TEVA-804201ACC

PATIENT
  Age: 69 Year
  Sex: Male

DRUGS (11)
  1. GLYCERYL TRINITRATE [Concomitant]
     Active Substance: NITROGLYCERIN
  2. LOSARTAN. [Concomitant]
     Active Substance: LOSARTAN
  3. SERTRALINE HYDROCHLORIDE. [Suspect]
     Active Substance: SERTRALINE HYDROCHLORIDE
     Indication: DEPRESSION
     Dosage: 50 MILLIGRAM DAILY;
     Route: 048
     Dates: start: 20170731
  4. ESOMEPRAZOLE [Concomitant]
     Active Substance: ESOMEPRAZOLE
  5. HYDROCORTONE [Concomitant]
     Active Substance: HYDROCORTISONE
  6. RANITIDINE. [Concomitant]
     Active Substance: RANITIDINE
  7. ATORVASTATIN [Concomitant]
     Active Substance: ATORVASTATIN
  8. QUETIAPINE. [Suspect]
     Active Substance: QUETIAPINE
     Indication: ACUTE PSYCHOSIS
     Dosage: 50 MILLIGRAM DAILY; NIGHT
     Route: 048
     Dates: start: 20170817
  9. AMLODIPINE [Concomitant]
     Active Substance: AMLODIPINE BESYLATE
  10. SILDENAFIL. [Concomitant]
     Active Substance: SILDENAFIL
  11. MICONAZOLE. [Concomitant]
     Active Substance: MICONAZOLE

REACTIONS (2)
  - Hyponatraemia [Not Recovered/Not Resolved]
  - Seizure [Not Recovered/Not Resolved]

NARRATIVE: CASE EVENT DATE: 20170822
